FAERS Safety Report 8122867-6 (Version None)
Quarter: 2012Q1

REPORT INFORMATION
  Report Type: 
  Country: None (occurrence: None)
  Receive Date: 20120206
  Receipt Date: 20120124
  Transmission Date: 20120608
  Serious: Yes (Death, Hospitalization, Other)
  Sender: FDA-Public Use
  Company Number: 2012MA001161

PATIENT
  Sex: Male
  Weight: 95.2554 kg

DRUGS (30)
  1. PLAVIX [Concomitant]
  2. ALBUTEROL [Concomitant]
  3. HALDOL [Concomitant]
  4. COUMADIN [Concomitant]
  5. DULOCOLAX [Concomitant]
  6. MOTRIN [Concomitant]
  7. POTASSIUM CHLORIDE [Concomitant]
  8. LASIX [Concomitant]
  9. LEXAPRO [Concomitant]
  10. PRINIVIL [Concomitant]
  11. ROCEPHIN [Concomitant]
  12. ALDACTONE [Concomitant]
  13. ASPIRIN [Concomitant]
  14. IMDUR [Concomitant]
  15. DIGOXIN [Suspect]
     Indication: PRODUCT USED FOR UNKNOWN INDICATION
     Dosage: 0.25 MG;QD;PO
     Route: 048
     Dates: start: 20051230, end: 20070301
  16. AMIODARONE HCL [Concomitant]
  17. AVELOX [Concomitant]
  18. FLEETS [Concomitant]
  19. ACCUPRIL [Concomitant]
  20. DICLOXACILLIN [Concomitant]
  21. EFFEXOR [Concomitant]
  22. ZAROXOLYN [Concomitant]
  23. MS CONTIN [Concomitant]
  24. SLOW-MAG [Concomitant]
  25. VANTIN [Concomitant]
  26. ZOCOR [Concomitant]
  27. COMBIVENT [Concomitant]
  28. COREG [Concomitant]
  29. DUONEB [Concomitant]
  30. NITROGLYCERIN [Concomitant]

REACTIONS (82)
  - ACTIVITIES OF DAILY LIVING IMPAIRED [None]
  - CARDIAC FAILURE CONGESTIVE [None]
  - ATRIAL FIBRILLATION [None]
  - BRONCHITIS [None]
  - LYMPHOCYTE COUNT DECREASED [None]
  - SINUSITIS [None]
  - ILIAC ARTERY STENOSIS [None]
  - AORTIC ANEURYSM [None]
  - ASCITES [None]
  - PYREXIA [None]
  - COUGH [None]
  - SUPRAVENTRICULAR EXTRASYSTOLES [None]
  - PULMONARY HYPERTENSION [None]
  - SKIN ULCER [None]
  - DELIRIUM [None]
  - CARDIOACTIVE DRUG LEVEL ABOVE THERAPEUTIC [None]
  - BLOOD SODIUM DECREASED [None]
  - ANEURYSM [None]
  - OSTEOARTHRITIS [None]
  - MUSCULAR WEAKNESS [None]
  - LEFT ATRIAL DILATATION [None]
  - MYOCARDIAL ISCHAEMIA [None]
  - MONOCYTE COUNT INCREASED [None]
  - TOXICITY TO VARIOUS AGENTS [None]
  - MALNUTRITION [None]
  - DYSPNOEA [None]
  - CONFUSIONAL STATE [None]
  - ABASIA [None]
  - BRADYCARDIA [None]
  - CELLULITIS [None]
  - DEPRESSION [None]
  - RALES [None]
  - VENTRICULAR EXTRASYSTOLES [None]
  - BREATH SOUNDS ABNORMAL [None]
  - EOSINOPHIL COUNT INCREASED [None]
  - HAEMATOCRIT DECREASED [None]
  - CEREBRAL INFARCTION [None]
  - EXERCISE TOLERANCE DECREASED [None]
  - PSYCHOTIC DISORDER [None]
  - MOBILITY DECREASED [None]
  - DEPRESSED MOOD [None]
  - RIGHT ATRIAL DILATATION [None]
  - URINARY TRACT INFECTION [None]
  - BLOOD ALBUMIN DECREASED [None]
  - BLOOD CALCIUM DECREASED [None]
  - ILIAC ARTERY OCCLUSION [None]
  - CHOLELITHIASIS [None]
  - DYSPNOEA EXERTIONAL [None]
  - PNEUMONIA [None]
  - PAIN IN EXTREMITY [None]
  - MEMORY IMPAIRMENT [None]
  - AGITATION [None]
  - MENTAL STATUS CHANGES [None]
  - BLOOD POTASSIUM DECREASED [None]
  - CARDIAC MURMUR [None]
  - WHITE BLOOD CELL COUNT INCREASED [None]
  - HAEMOGLOBIN DECREASED [None]
  - FEMORAL ARTERY ANEURYSM [None]
  - CHEST PAIN [None]
  - FATIGUE [None]
  - CARDIOMEGALY [None]
  - DYSSTASIA [None]
  - AORTIC VALVE SCLEROSIS [None]
  - PHARYNGEAL ERYTHEMA [None]
  - OEDEMA PERIPHERAL [None]
  - PULMONARY CONGESTION [None]
  - SKIN FISSURES [None]
  - BODY TEMPERATURE INCREASED [None]
  - SPEECH DISORDER [None]
  - THROAT IRRITATION [None]
  - GALLOP RHYTHM PRESENT [None]
  - PLEURAL EFFUSION [None]
  - MYOCARDIAL INFARCTION [None]
  - SOMNOLENCE [None]
  - SEPSIS [None]
  - RENAL FAILURE [None]
  - COAGULOPATHY [None]
  - BLOOD THYROID STIMULATING HORMONE INCREASED [None]
  - CEREBRAL ARTERIOSCLEROSIS [None]
  - IMPAIRED HEALING [None]
  - LOBAR PNEUMONIA [None]
  - MONOPLEGIA [None]
